FAERS Safety Report 6910845-1 (Version None)
Quarter: 2010Q3

REPORT INFORMATION
  Report Type: 
  Country: None (occurrence: None)
  Receive Date: 20100716
  Receipt Date: 20090804
  Transmission Date: 20110219
  Serious: Yes (Other)
  Sender: FDA-Public Use
  Company Number: 2009232145

PATIENT

DRUGS (2)
  1. CELEBREX [Suspect]
  2. SIMVASTATIN [Suspect]

REACTIONS (1)
  - HEPATIC ENZYME INCREASED [None]
